FAERS Safety Report 9231518 (Version 3)
Quarter: 2013Q3

REPORT INFORMATION
  Report Type: Report from Study
  Country: JP (occurrence: JP)
  Receive Date: 20130415
  Receipt Date: 20130924
  Transmission Date: 20140515
  Serious: Yes (Hospitalization)
  Sender: FDA-Public Use
  Company Number: JP-GLAXOSMITHKLINE-B0881219A

PATIENT
  Age: 85 Year
  Sex: Male
  Weight: 65 kg

DRUGS (35)
  1. REVOLADE [Suspect]
     Indication: IMMUNE THROMBOCYTOPENIC PURPURA
     Route: 048
     Dates: start: 20110720, end: 20110920
  2. REVOLADE [Suspect]
     Indication: IMMUNE THROMBOCYTOPENIC PURPURA
     Route: 048
     Dates: start: 20110921, end: 20111016
  3. REVOLADE [Suspect]
     Indication: IMMUNE THROMBOCYTOPENIC PURPURA
     Route: 048
     Dates: start: 20111017, end: 20111211
  4. REVOLADE [Suspect]
     Indication: IMMUNE THROMBOCYTOPENIC PURPURA
     Route: 048
     Dates: start: 20111212, end: 20120304
  5. REVOLADE [Suspect]
     Indication: IMMUNE THROMBOCYTOPENIC PURPURA
     Dosage: 12.5MG FOUR TIMES PER WEEK
     Route: 048
     Dates: start: 20120305, end: 20130323
  6. LONGES [Concomitant]
     Route: 048
  7. ARTIST [Concomitant]
     Route: 048
  8. ZYLORIC [Concomitant]
     Route: 048
  9. BERAPROST SODIUM [Concomitant]
     Route: 048
  10. EXCELASE [Concomitant]
     Route: 048
  11. OPALMON [Concomitant]
     Route: 048
  12. METHYCOBAL [Concomitant]
     Route: 048
  13. PANTOSIN [Concomitant]
     Route: 048
  14. MAGMITT [Concomitant]
     Route: 048
  15. VESICARE [Concomitant]
     Route: 048
  16. OMEPRAL [Concomitant]
     Route: 048
  17. MEXITIL [Concomitant]
     Route: 048
  18. PIMENOL [Concomitant]
     Route: 048
  19. PREDNISOLONE [Concomitant]
     Indication: IMMUNE THROMBOCYTOPENIC PURPURA
     Route: 048
     Dates: start: 20110628, end: 20110712
  20. PREDNISOLONE [Concomitant]
     Indication: IMMUNE THROMBOCYTOPENIC PURPURA
     Route: 048
     Dates: start: 20110713, end: 20110719
  21. PREDNISOLONE [Concomitant]
     Indication: IMMUNE THROMBOCYTOPENIC PURPURA
     Route: 048
     Dates: start: 20110720, end: 20110801
  22. PREDNISOLONE [Concomitant]
     Indication: IMMUNE THROMBOCYTOPENIC PURPURA
     Route: 048
     Dates: start: 20110802, end: 20110815
  23. PREDNISOLONE [Concomitant]
     Indication: IMMUNE THROMBOCYTOPENIC PURPURA
     Route: 048
     Dates: start: 20110816, end: 20110829
  24. PREDNISOLONE [Concomitant]
     Indication: IMMUNE THROMBOCYTOPENIC PURPURA
     Route: 048
     Dates: start: 20110830, end: 20110912
  25. PREDNISOLONE [Concomitant]
     Indication: IMMUNE THROMBOCYTOPENIC PURPURA
     Route: 048
     Dates: start: 20110913, end: 20111114
  26. PREDNISOLONE [Concomitant]
     Indication: IMMUNE THROMBOCYTOPENIC PURPURA
     Route: 048
     Dates: start: 20111115
  27. PREDNISOLONE [Concomitant]
     Indication: IMMUNE THROMBOCYTOPENIC PURPURA
     Route: 048
     Dates: start: 20120416, end: 20120506
  28. PREDNISOLONE [Concomitant]
     Indication: IMMUNE THROMBOCYTOPENIC PURPURA
     Route: 048
     Dates: start: 20120507, end: 20120520
  29. PREDNISOLONE [Concomitant]
     Indication: IMMUNE THROMBOCYTOPENIC PURPURA
     Route: 048
     Dates: start: 20120521, end: 20120610
  30. PREDNISOLONE [Concomitant]
     Indication: IMMUNE THROMBOCYTOPENIC PURPURA
     Route: 048
     Dates: start: 20120611, end: 20120708
  31. FUROSEMIDE [Concomitant]
     Route: 048
     Dates: start: 20120418, end: 20120501
  32. FUROSEMIDE [Concomitant]
     Route: 048
     Dates: start: 20120502
  33. PURSENNID [Concomitant]
     Route: 048
     Dates: start: 20120502, end: 20120516
  34. PREDONINE [Concomitant]
     Indication: IMMUNE THROMBOCYTOPENIC PURPURA
     Route: 048
     Dates: end: 20120415
  35. LUPRAC [Concomitant]
     Route: 048
     Dates: start: 20120815

REACTIONS (1)
  - Cerebellar infarction [Recovering/Resolving]
